FAERS Safety Report 5210490-2 (Version None)
Quarter: 2007Q1

REPORT INFORMATION
  Report Type: 
  Country: None (occurrence: None)
  Receive Date: 20070116
  Receipt Date: 20070116
  Transmission Date: 20070707
  Serious: No
  Sender: FDA-Public Use
  Company Number: None

PATIENT
  Sex: Female
  Weight: 79.3795 kg

DRUGS (1)
  1. BONIVA [Suspect]

REACTIONS (4)
  - CHEST PAIN [None]
  - OESOPHAGEAL PAIN [None]
  - OESOPHAGITIS [None]
  - VOMITING [None]
